FAERS Safety Report 18258860 (Version 2)
Quarter: 2021Q1

REPORT INFORMATION
  Report Type: Spontaneous
  Country: US (occurrence: US)
  Receive Date: 20200911
  Receipt Date: 20210319
  Transmission Date: 20210419
  Serious: Yes (Other)
  Sender: FDA-Public Use
  Company Number: US-PFIZER INC-2020351370

PATIENT
  Age: 59 Year
  Sex: Male

DRUGS (5)
  1. AMLODIPINE [Concomitant]
     Active Substance: AMLODIPINE BESYLATE
     Dosage: UNK
  2. DILANTIN [Suspect]
     Active Substance: PHENYTOIN
     Indication: SEIZURE
     Dosage: 200 MG, 1X/DAY
     Route: 048
     Dates: start: 1967, end: 20190704
  3. METOPROLOL. [Concomitant]
     Active Substance: METOPROLOL
     Dosage: UNK
  4. MECLIZINE HCL [Concomitant]
     Active Substance: MECLIZINE HYDROCHLORIDE
     Dosage: UNK
  5. MONTELUKAST SODIUM. [Concomitant]
     Active Substance: MONTELUKAST SODIUM
     Dosage: UNK

REACTIONS (2)
  - Cerebellar atrophy [Unknown]
  - Balance disorder [Unknown]

NARRATIVE: CASE EVENT DATE: 20190704
